FAERS Safety Report 6038614-8 (Version None)
Quarter: 2009Q1

REPORT INFORMATION
  Report Type: 
  Country: None (occurrence: None)
  Receive Date: 20090113
  Receipt Date: 20080916
  Transmission Date: 20090719
  Serious: No
  Sender: FDA-Public Use
  Company Number: 2008BM000188

PATIENT
  Age: 16 Year
  Sex: Female
  Weight: 55.3388 kg

DRUGS (2)
  1. KUVAN [Suspect]
     Indication: PHENYLKETONURIA
     Dosage: 1100 MG;QD;PO
     Route: 048
     Dates: start: 20080301
  2. ORAL CONTRACEPTIVE NOS [Concomitant]

REACTIONS (1)
  - ABDOMINAL PAIN UPPER [None]
